FAERS Safety Report 19884243 (Version 1)
Quarter: 2021Q3

REPORT INFORMATION
  Report Type: Spontaneous
  Country: US (occurrence: US)
  Receive Date: 20210923
  Receipt Date: 20210923
  Transmission Date: 20211014
  Serious: No
  Sender: FDA-Public Use
  Company Number: None

PATIENT
  Age: 74 Year
  Sex: Male
  Weight: 93 kg

DRUGS (2)
  1. ACETAMINOPHEN/ASPIRIN/CAFFEINE (ACETAMINOPHEN 250MG/ASPIRIN 250MG/CAFF [Suspect]
     Active Substance: ACETAMINOPHEN\ASPIRIN\CAFFEINE
     Indication: PAIN
  2. APIXABAN (APIXABAN 5MG TAB) [Suspect]
     Active Substance: APIXABAN
     Indication: ATRIAL FIBRILLATION
     Dates: start: 20210815, end: 20210920

REACTIONS (2)
  - Gastric haemorrhage [None]
  - Haemorrhage [None]

NARRATIVE: CASE EVENT DATE: 20210920
